FAERS Safety Report 16209370 (Version 1)
Quarter: 2019Q2

REPORT INFORMATION
  Report Type: Report from Study
  Country: GB (occurrence: GB)
  Receive Date: 20190417
  Receipt Date: 20190417
  Transmission Date: 20190711
  Serious: Yes (Hospitalization, Other)
  Sender: FDA-Public Use
  Company Number: GB-MYLANLABS-2019M1036237

PATIENT
  Age: 44 Year
  Sex: Male

DRUGS (4)
  1. CAPECITABINE. [Suspect]
     Active Substance: CAPECITABINE
     Indication: ADENOCARCINOMA GASTRIC
     Dosage: DATE OF MOST RECENT DOSE PRIOR TO SAE : 01/FEB/2013
     Route: 048
     Dates: start: 20121130
  2. BEVACIZUMAB. [Suspect]
     Active Substance: BEVACIZUMAB
     Indication: ADENOCARCINOMA GASTRIC
     Dosage: DATE OF LAST DOSE PRIOR TO SAE : 11/JAN/2013
     Route: 042
     Dates: start: 20121130
  3. CISPLATIN. [Suspect]
     Active Substance: CISPLATIN
     Indication: ADENOCARCINOMA GASTRIC
     Dosage: DATE OF MOST RECENT DOSE PRIOR TO SAE : 11/JAN/2013
     Route: 042
     Dates: start: 20121130
  4. EPIRUBICIN [Suspect]
     Active Substance: EPIRUBICIN
     Indication: ADENOCARCINOMA GASTRIC
     Dosage: DATE OF MOST RECENT DOSE PRIOR TO SAE : 11/JAN/2013
     Route: 042
     Dates: start: 20121130

REACTIONS (2)
  - Wound infection [Recovered/Resolved]
  - Anastomotic leak [Recovered/Resolved]

NARRATIVE: CASE EVENT DATE: 20130313
